FAERS Safety Report 11163211 (Version 1)
Quarter: 2015Q2

REPORT INFORMATION
  Report Type: Spontaneous
  Country: US (occurrence: None)
  Receive Date: 20150603
  Receipt Date: 20150603
  Transmission Date: 20150821
  Serious: No
  Sender: FDA-Public Use
  Company Number: None

PATIENT
  Age: 56 Year
  Sex: Female

DRUGS (11)
  1. POTASSIUM [Concomitant]
     Active Substance: POTASSIUM
  2. IBRANCE [Suspect]
     Active Substance: PALBOCICLIB
     Indication: BREAST CANCER
     Route: 048
     Dates: start: 201505
  3. MORPHINE [Concomitant]
     Active Substance: MORPHINE
  4. MUPIROCIN. [Concomitant]
     Active Substance: MUPIROCIN
  5. WARFARIN [Concomitant]
     Active Substance: WARFARIN
  6. CARVEDILOL. [Concomitant]
     Active Substance: CARVEDILOL
  7. LORAZEPAM. [Concomitant]
     Active Substance: LORAZEPAM
  8. ONDANSETRON [Concomitant]
     Active Substance: ONDANSETRON
  9. OXYCODON [Concomitant]
     Active Substance: OXYCODONE
  10. DULERA [Concomitant]
     Active Substance: FORMOTEROL FUMARATE DIHYDRATE\MOMETASONE FUROATE
  11. LOSARTAN [Concomitant]
     Active Substance: LOSARTAN

REACTIONS (1)
  - Anaemia [None]

NARRATIVE: CASE EVENT DATE: 201505
